FAERS Safety Report 4404193-1 (Version None)
Quarter: 2004Q3

REPORT INFORMATION
  Report Type: 
  Country: None (occurrence: None)
  Receive Date: 20040719
  Receipt Date: 20040708
  Transmission Date: 20050211
  Serious: Yes (Hospitalization)
  Sender: FDA-Public Use
  Company Number: FRWYE889508JUL04

PATIENT
  Age: 84 Year
  Sex: Female

DRUGS (9)
  1. OXAZEPAM [Suspect]
     Indication: SLEEP DISORDER
     Dosage: 50 MG 1X PER 1 DAY ORAL
     Route: 048
     Dates: end: 20040205
  2. DURAGESIC [Suspect]
     Dates: start: 20040205, end: 20040205
  3. CLONAZEPAM [Suspect]
     Dosage: 2.5 MG 1X PER 1 DAY ORAL
     Route: 048
     Dates: end: 20040205
  4. VALIUM [Suspect]
     Dosage: 10 MG 1X PER 1 DAY ORAL
     Route: 048
     Dates: end: 20040205
  5. GINKOR (GINKGO TREE LEAVES EXTRACT/TROXERUTIN) [Concomitant]
  6. HEPATMINOL (HEPTAMINOL) [Concomitant]
  7. SINGULAIR [Concomitant]
  8. CALCIDIA (CALCIUM CARBONATE) [Concomitant]
  9. OXEOL (BAMBUTEROL HYDROCHLORIDE) [Concomitant]

REACTIONS (6)
  - CARDIOMEGALY [None]
  - CLUMSINESS [None]
  - FALL [None]
  - PLEURAL EFFUSION [None]
  - RENAL FAILURE [None]
  - RESPIRATORY FAILURE [None]
